FAERS Safety Report 4691812-8 (Version None)
Quarter: 2005Q2

REPORT INFORMATION
  Report Type: 
  Country: None (occurrence: None)
  Receive Date: 20050616
  Receipt Date: 20050603
  Transmission Date: 20051028
  Serious: Yes (Death)
  Sender: FDA-Public Use
  Company Number: FR-JNJFOC-20050400359

PATIENT
  Age: 60 Year
  Sex: Female

DRUGS (1)
  1. DURAGESIC-100 [Suspect]
     Route: 062

REACTIONS (2)
  - BREAST CANCER METASTATIC [None]
  - MEMORY IMPAIRMENT [None]
